FAERS Safety Report 7308745-0 (Version None)
Quarter: 2011Q1

REPORT INFORMATION
  Report Type: 
  Country: None (occurrence: None)
  Receive Date: 20110223
  Receipt Date: 20110211
  Transmission Date: 20110831
  Serious: Yes (Other)
  Sender: FDA-Public Use
  Company Number: PHHY2011AU08312

PATIENT
  Sex: Female
  Weight: 58.2 kg

DRUGS (4)
  1. ZOLOFT [Concomitant]
  2. LIPITOR [Concomitant]
     Dosage: 40 MG, UNK
  3. MICARDIS [Concomitant]
  4. ACLASTA [Suspect]
     Indication: OSTEOPOROSIS
     Dosage: 5 MG
     Route: 042
     Dates: start: 20110131

REACTIONS (1)
  - HYPOTENSION [None]
